FAERS Safety Report 7783424-4 (Version None)
Quarter: 2011Q3

REPORT INFORMATION
  Report Type: 
  Country: None (occurrence: None)
  Receive Date: 20110928
  Receipt Date: 20110928
  Transmission Date: 20111222
  Serious: No
  Sender: FDA-Public Use
  Company Number: None

PATIENT
  Age: 46 Year
  Sex: Female
  Weight: 56.699 kg

DRUGS (1)
  1. MIRENA [Suspect]
     Dosage: HORMONE IS IN IUD
     Dates: start: 20100801, end: 20110106

REACTIONS (8)
  - PARAESTHESIA [None]
  - VISION BLURRED [None]
  - ANXIETY [None]
  - INFLUENZA LIKE ILLNESS [None]
  - HORMONE LEVEL ABNORMAL [None]
  - DIZZINESS [None]
  - ASTHENIA [None]
  - FEELING ABNORMAL [None]
